FAERS Safety Report 13244484 (Version 1)
Quarter: 2017Q1

REPORT INFORMATION
  Report Type: Spontaneous
  Country: FR (occurrence: FR)
  Receive Date: 20170217
  Receipt Date: 20170217
  Transmission Date: 20170428
  Serious: Yes (Other)
  Sender: FDA-Public Use
  Company Number: FR-PFIZER INC-2017069398

PATIENT
  Age: 83 Year
  Sex: Male

DRUGS (4)
  1. TIGECYCLINE. [Suspect]
     Active Substance: TIGECYCLINE
     Dosage: 50 MG, 2X/DAY
  2. TIGECYCLINE. [Suspect]
     Active Substance: TIGECYCLINE
     Indication: SKIN INFECTION
     Dosage: 100 MG, 2X/DAY
     Dates: start: 20150914
  3. COLIMYCINE /00013203/ [Concomitant]
     Active Substance: COLISTIMETHATE SODIUM
     Indication: SKIN INFECTION
     Dosage: UNK, DAILY (12 MUI/D)
     Dates: start: 20150914
  4. LEVOFLOXACINE /01278901/ [Concomitant]
     Active Substance: LEVOFLOXACIN
     Indication: SKIN INFECTION
     Dosage: 250 MG, 2X/DAY
     Dates: start: 20150914

REACTIONS (3)
  - Product use issue [Unknown]
  - Shock haemorrhagic [Unknown]
  - Hypofibrinogenaemia [Unknown]
